FAERS Safety Report 23299247 (Version 1)
Quarter: 2023Q4

REPORT INFORMATION
  Report Type: Spontaneous
  Country: US (occurrence: None)
  Receive Date: 20231215
  Receipt Date: 20231215
  Transmission Date: 20240110
  Serious: No
  Sender: FDA-Public Use
  Company Number: 2023A266643

PATIENT

DRUGS (2)
  1. BYDUREON BCISE [Suspect]
     Active Substance: EXENATIDE
     Dosage: 2.0MG UNKNOWN
  2. BYETTA [Suspect]
     Active Substance: EXENATIDE

REACTIONS (5)
  - Injection site discolouration [Unknown]
  - Injection site nodule [Unknown]
  - Injection site haemorrhage [Unknown]
  - Injection site induration [Unknown]
  - Incorrect dose administered by device [Unknown]
